FAERS Safety Report 12080220 (Version 1)
Quarter: 2016Q1

REPORT INFORMATION
  Report Type: Spontaneous
  Country: US (occurrence: None)
  Receive Date: 20160212
  Receipt Date: 20160212
  Transmission Date: 20160526
  Serious: No
  Sender: FDA-Public Use
  Company Number: None

PATIENT
  Sex: Male

DRUGS (1)
  1. SYRINGE-ART-DRY LITH HEPARIN SMITHS MEDICAL MD, INC [Suspect]
     Active Substance: HEPARIN LITHIUM
     Dosage: SYRINGE

REACTIONS (5)
  - Product label confusion [None]
  - Wrong device used [None]
  - Thrombosis [None]
  - Product packaging confusion [None]
  - False positive investigation result [None]
